FAERS Safety Report 4943154-0 (Version None)
Quarter: 2006Q1

REPORT INFORMATION
  Report Type: 
  Country: None (occurrence: None)
  Receive Date: 20060314
  Receipt Date: 20051003
  Transmission Date: 20060701
  Serious: Yes (Hospitalization, Disabling)
  Sender: FDA-Public Use
  Company Number: US-MERCK-0510USA02658

PATIENT
  Age: 58 Year
  Sex: Male
  Weight: 134 kg

DRUGS (1)
  1. VIOXX [Suspect]
     Indication: PAIN MANAGEMENT
     Route: 048
     Dates: start: 19990101, end: 20021012

REACTIONS (6)
  - BACK PAIN [None]
  - CLAVICLE FRACTURE [None]
  - ISCHAEMIC STROKE [None]
  - MONARTHRITIS [None]
  - ROTATOR CUFF SYNDROME [None]
  - ULCER [None]
